FAERS Safety Report 14708439 (Version 2)
Quarter: 2020Q2

REPORT INFORMATION
  Report Type: Spontaneous
  Country: US (occurrence: US)
  Receive Date: 20180403
  Receipt Date: 20200522
  Transmission Date: 20200713
  Serious: Yes (Death, Hospitalization, Other)
  Sender: FDA-Public Use
  Company Number: US-009507513-1804USA000387

PATIENT
  Sex: Male
  Weight: 70.85 kg

DRUGS (1)
  1. JANUVIA [Suspect]
     Active Substance: SITAGLIPTIN PHOSPHATE
     Indication: TYPE 2 DIABETES MELLITUS
     Dosage: 100 MILLIGRAM, DAILY
     Route: 048
     Dates: start: 200905, end: 201302

REACTIONS (10)
  - Prostatic specific antigen increased [Unknown]
  - Altered state of consciousness [Unknown]
  - Hepatic mass [Unknown]
  - Large intestine polyp [Unknown]
  - Pancreatic carcinoma [Fatal]
  - Chronic kidney disease [Unknown]
  - Mental status changes [Unknown]
  - Diabetic nephropathy [Unknown]
  - Jaundice cholestatic [Recovered/Resolved]
  - Pulmonary mass [Unknown]

NARRATIVE: CASE EVENT DATE: 20160901
